FAERS Safety Report 21335984 (Version 1)
Quarter: 2022Q3

REPORT INFORMATION
  Report Type: Report from Study
  Country: CA (occurrence: CA)
  Receive Date: 20220915
  Receipt Date: 20220915
  Transmission Date: 20221027
  Serious: Yes (Hospitalization, Other)
  Sender: FDA-Public Use
  Company Number: CA-BRISTOL-MYERS SQUIBB COMPANY-2022-105135

PATIENT
  Age: 74 Year
  Sex: Female
  Weight: 54.00 kg

DRUGS (8)
  1. ORENCIA [Suspect]
     Active Substance: ABATACEPT
     Indication: Rheumatoid arthritis
     Dosage: 4 WEEKS
     Route: 042
     Dates: start: 20210610
  2. RAMIPRIL [Concomitant]
     Active Substance: RAMIPRIL
  3. BACLOFEN [Concomitant]
     Active Substance: BACLOFEN
  4. CLONAZEPAM [Concomitant]
     Active Substance: CLONAZEPAM
  5. PREDNISONE [Concomitant]
     Active Substance: PREDNISONE
  6. PYRIDOXINE [Concomitant]
     Active Substance: PYRIDOXINE
  7. LEVOTHYROXINE [Concomitant]
     Active Substance: LEVOTHYROXINE
  8. TYLENOL [Concomitant]
     Active Substance: ACETAMINOPHEN

REACTIONS (4)
  - Spinal disorder [Unknown]
  - Fall [Unknown]
  - Anaemia [Unknown]
  - Arthralgia [Unknown]

NARRATIVE: CASE EVENT DATE: 20220715
